FAERS Safety Report 8543528-5 (Version None)
Quarter: 2012Q3

REPORT INFORMATION
  Report Type: 
  Country: None (occurrence: None)
  Receive Date: 20120727
  Receipt Date: 20120725
  Transmission Date: 20120928
  Serious: Yes (Death, Hospitalization)
  Sender: FDA-Public Use
  Company Number: PHHY2012MX005955

PATIENT
  Sex: Female

DRUGS (4)
  1. INSULINE [Concomitant]
     Indication: DIABETES MELLITUS
     Dosage: 10 UI FAST/ 25 INTERMEDIATE AT THE MORNING AND 5 FAST/ 10 INTERMEDIATE AT NIGHT
  2. LEVOTHYROXINE SODIUM [Concomitant]
     Dosage: 1.5 DAILY, QD
  3. COZAAR [Concomitant]
     Indication: HYPERTENSION
     Dosage: 50 MG (1 TABLET) PER DAY
  4. ZOLEDRONOC ACID [Suspect]
     Indication: OSTEOPOROSIS
     Dosage: 5 MG/100 ML ONCE A YEAR
     Route: 042
     Dates: start: 20110520

REACTIONS (7)
  - DEATH [None]
  - RESPIRATORY DISTRESS [None]
  - FLUID RETENTION [None]
  - OEDEMA PERIPHERAL [None]
  - SWELLING [None]
  - PIGMENTATION DISORDER [None]
  - MOVEMENT DISORDER [None]
